FAERS Safety Report 20739091 (Version 1)
Quarter: 2022Q2

REPORT INFORMATION
  Report Type: Spontaneous
  Country: US (occurrence: None)
  Receive Date: 20220421
  Receipt Date: 20220421
  Transmission Date: 20220721
  Serious: Yes (Other)
  Sender: FDA-Public Use
  Company Number: None

PATIENT
  Age: 61 Year
  Sex: Female
  Weight: 85.05 kg

DRUGS (3)
  1. GAMUNEX-C [Suspect]
     Active Substance: HUMAN IMMUNOGLOBULIN G
     Indication: Polyneuropathy
     Dosage: OTHER FREQUENCY : OVER 5 DY EVERY 4W;?
     Route: 042
  2. GAMUNEX-C [Suspect]
     Active Substance: HUMAN IMMUNOGLOBULIN G
     Indication: Polyneuropathy
     Dosage: OTHER FREQUENCY : Q 4 WKS;?
     Route: 042
  3. SoluMedrol 1000mg [Concomitant]
     Dates: start: 20220421, end: 20220421

REACTIONS (3)
  - Throat irritation [None]
  - Rash erythematous [None]
  - Infusion related reaction [None]

NARRATIVE: CASE EVENT DATE: 20220421
